FAERS Safety Report 16079175 (Version 5)
Quarter: 2019Q2

REPORT INFORMATION
  Report Type: Spontaneous
  Country: IT (occurrence: IT)
  Receive Date: 20190315
  Receipt Date: 20190409
  Transmission Date: 20190711
  Serious: Yes (Other)
  Sender: FDA-Public Use
  Company Number: IT-PFIZER INC-2019108311

PATIENT
  Sex: Female

DRUGS (6)
  1. JINARC [Suspect]
     Active Substance: TOLVAPTAN
     Dosage: UNK (45/15)
     Route: 065
  2. EUTIROX [Suspect]
     Active Substance: LEVOTHYROXINE SODIUM
     Dosage: 75 ?G, UNK (75 MCG/DIE)
     Route: 065
  3. TRIATEC (RAMIPRIL) [Suspect]
     Active Substance: RAMIPRIL
     Dosage: 1 DF, UNK (2.5 MG- 1 TABLET FOR 2 / DIE)
     Route: 065
  4. DIDROGYL [Suspect]
     Active Substance: CALCIFEDIOL
     Dosage: 25 GTT, WEEKLY (25 DROPS/ ONCE A WEEK)
     Route: 065
  5. AMLODIPINE BESILATE [Suspect]
     Active Substance: AMLODIPINE BESYLATE
     Dosage: 5 MG, DAILY (1 TABLET A DAY)
     Route: 065
  6. TRIATEC-30 [Suspect]
     Active Substance: ACETAMINOPHEN\CODEINE PHOSPHATE
     Dosage: 1 DF, UNK (2.5 MG- 1 TABLET FOR 2 / DIE)
     Route: 065

REACTIONS (1)
  - Atrial fibrillation [Unknown]
